FAERS Safety Report 9930841 (Version 2)
Quarter: 2014Q2

REPORT INFORMATION
  Report Type: Spontaneous
  Country: US (occurrence: US)
  Receive Date: 20140227
  Receipt Date: 20140521
  Transmission Date: 20141212
  Serious: Yes (Other)
  Sender: FDA-Public Use
  Company Number: US-AMGEN-USASP2014003370

PATIENT
  Age: 64 Year
  Sex: Male

DRUGS (1)
  1. ENBREL [Suspect]
     Indication: PSORIATIC ARTHROPATHY
     Dosage: 50 MG, QWK
     Route: 065
     Dates: start: 2011, end: 201401

REACTIONS (7)
  - Rotator cuff syndrome [Recovered/Resolved]
  - Staphylococcal infection [Not Recovered/Not Resolved]
  - Mass [Not Recovered/Not Resolved]
  - Pain [Recovered/Resolved]
  - Balance disorder [Not Recovered/Not Resolved]
  - Back pain [Not Recovered/Not Resolved]
  - Arthralgia [Not Recovered/Not Resolved]
